FAERS Safety Report 6743737-1 (Version None)
Quarter: 2010Q2

REPORT INFORMATION
  Report Type: 
  Country: None (occurrence: None)
  Receive Date: 20100527
  Receipt Date: 20100526
  Transmission Date: 20101027
  Serious: Yes (Hospitalization, Other)
  Sender: FDA-Public Use
  Company Number: DE-ROXANE LABORATORIES, INC.-2010-RO-00635RO

PATIENT
  Age: 43 Year
  Sex: Female

DRUGS (4)
  1. RISPERIDONE [Suspect]
     Indication: SCHIZOPHRENIA
     Dosage: 6 MG
  2. CLOZAPINE [Suspect]
     Indication: SCHIZOPHRENIA
     Dosage: 600 MG
  3. CLOZAPINE [Suspect]
     Dosage: 575 MG
  4. PALIPERIDONE [Suspect]
     Indication: SCHIZOPHRENIA
     Dosage: 9 MG

REACTIONS (2)
  - DRUG LEVEL INCREASED [None]
  - HEPATITIS [None]
